FAERS Safety Report 6464037-3 (Version None)
Quarter: 2009Q4

REPORT INFORMATION
  Report Type: 
  Country: None (occurrence: None)
  Receive Date: 20091201
  Receipt Date: 20091120
  Transmission Date: 20100525
  Serious: Yes (Other)
  Sender: FDA-Public Use
  Company Number: US-AMGEN-QUU375964

PATIENT
  Sex: Female

DRUGS (4)
  1. ENBREL [Suspect]
     Indication: PSORIASIS
     Route: 058
     Dates: start: 20030423
  2. ENBREL [Suspect]
     Indication: PSORIATIC ARTHROPATHY
  3. SULFASALAZINE [Concomitant]
  4. METHOTREXATE [Concomitant]
     Dates: start: 20010201

REACTIONS (6)
  - BACK PAIN [None]
  - DIABETES MELLITUS [None]
  - GAIT DISTURBANCE [None]
  - INJECTION SITE PAIN [None]
  - RHEUMATOID ARTHRITIS [None]
  - SKIN BACTERIAL INFECTION [None]
